FAERS Safety Report 9252683 (Version 2)
Quarter: 2013Q2

REPORT INFORMATION
  Report Type: Spontaneous
  Country: JP (occurrence: JP)
  Receive Date: 20130424
  Receipt Date: 20130603
  Transmission Date: 20140414
  Serious: Yes (Other)
  Sender: FDA-Public Use
  Company Number: JP-GLAXOSMITHKLINE-B0885015A

PATIENT
  Age: 10 Year
  Sex: Female

DRUGS (3)
  1. LAMICTAL [Suspect]
     Indication: EPILEPSY
     Route: 048
  2. EXCEGRAN [Concomitant]
     Route: 048
  3. TEGRETOL [Concomitant]
     Route: 048

REACTIONS (3)
  - Juvenile idiopathic arthritis [Unknown]
  - Arthralgia [Unknown]
  - Joint swelling [Unknown]
